FAERS Safety Report 5674152-X (Version None)
Quarter: 2008Q1

REPORT INFORMATION
  Report Type: 
  Country: None (occurrence: None)
  Receive Date: 20080320
  Receipt Date: 20080310
  Transmission Date: 20080703
  Serious: Yes (Other)
  Sender: FDA-Public Use
  Company Number: ZA-BRISTOL-MYERS SQUIBB COMPANY-14120505

PATIENT
  Age: 60 Year
  Sex: Male

DRUGS (5)
  1. ENDOXAN [Suspect]
     Indication: PEMPHIGOID
     Dosage: ON SATURDAYS AND SUNDAYS - 150MG PO, 2/WEEK.
     Route: 048
     Dates: start: 20060601
  2. METFORMIN HCL [Concomitant]
     Indication: DIABETES MELLITUS
  3. DIAMICRON [Concomitant]
     Indication: DIABETES MELLITUS
  4. INDAPAMIDE [Concomitant]
     Indication: HYPERTENSION
  5. INSULIN [Concomitant]
     Indication: DIABETES MELLITUS

REACTIONS (4)
  - ARTHRALGIA [None]
  - LETHARGY [None]
  - MYALGIA [None]
  - PYREXIA [None]
